FAERS Safety Report 6365188-4 (Version None)
Quarter: 2009Q3

REPORT INFORMATION
  Report Type: 
  Country: None (occurrence: None)
  Receive Date: 20090919
  Receipt Date: 20090805
  Transmission Date: 20100115
  Serious: No
  Sender: FDA-Public Use
  Company Number: US-ABBOTT-09P-163-0590040-00

PATIENT
  Sex: Male

DRUGS (1)
  1. HUMIRA [Suspect]
     Indication: DRUG USE FOR UNKNOWN INDICATION
     Dosage: RECEIVED INITIAL LOADING DOSE ON DAY 1, AND  RECENTLY RECEIVED 1/2 DOSE OF 80 MG
     Route: 058

REACTIONS (1)
  - INCORRECT DOSE ADMINISTERED [None]
